FAERS Safety Report 4446592-8 (Version None)
Quarter: 2004Q3

REPORT INFORMATION
  Report Type: 
  Country: None (occurrence: None)
  Receive Date: 20040908
  Receipt Date: 20040825
  Transmission Date: 20050211
  Serious: Yes (Other)
  Sender: FDA-Public Use
  Company Number: 2004230814US

PATIENT
  Sex: Female

DRUGS (6)
  1. PROVERA [Suspect]
  2. PREMPRO [Suspect]
  3. PREMARIN [Suspect]
  4. ORTHOPREFEST [Suspect]
  5. ESTROGEN [Suspect]
  6. MEDROXYPROGESTERONE [Suspect]

REACTIONS (3)
  - ARTHRITIS [None]
  - BREAST CANCER FEMALE [None]
  - DEAFNESS [None]
